FAERS Safety Report 14390335 (Version 4)
Quarter: 2018Q1

REPORT INFORMATION
  Report Type: Spontaneous
  Country: US (occurrence: US)
  Receive Date: 20180116
  Receipt Date: 20180306
  Transmission Date: 20180509
  Serious: No
  Sender: FDA-Public Use
  Company Number: PHEH2018US001563

PATIENT
  Sex: Female

DRUGS (1)
  1. BIMATOPROST. [Suspect]
     Active Substance: BIMATOPROST
     Indication: PRODUCT USED FOR UNKNOWN INDICATION
     Dosage: 1 DF, QD (0.03)
     Route: 047

REACTIONS (5)
  - Drug ineffective [Unknown]
  - Eye irritation [Unknown]
  - Ocular hyperaemia [Unknown]
  - Rash [Recovered/Resolved]
  - Skin irritation [Unknown]
